FAERS Safety Report 14216341 (Version 1)
Quarter: 2017Q4

REPORT INFORMATION
  Report Type: Spontaneous
  Country: US (occurrence: US)
  Receive Date: 20171122
  Receipt Date: 20171122
  Transmission Date: 20180321
  Serious: Yes (Other)
  Sender: FDA-Public Use
  Company Number: US-SUNOVION-2017SUN004982

PATIENT
  Sex: Female
  Weight: 115.65 kg

DRUGS (1)
  1. APTIOM [Suspect]
     Active Substance: ESLICARBAZEPINE ACETATE
     Indication: FOCAL DYSCOGNITIVE SEIZURES
     Dosage: 200 MG, TID
     Route: 048
     Dates: start: 2017

REACTIONS (1)
  - Seizure [Unknown]
